FAERS Safety Report 4851809-1 (Version None)
Quarter: 2005Q4

REPORT INFORMATION
  Report Type: 
  Country: None (occurrence: None)
  Receive Date: 20051213
  Receipt Date: 20051206
  Transmission Date: 20060501
  Serious: No
  Sender: FDA-Public Use
  Company Number: 2005UW18441

PATIENT
  Age: 50 Year
  Sex: Female

DRUGS (7)
  1. CRESTOR [Suspect]
     Route: 048
  2. TRICOR [Suspect]
  3. COUMADIN [Suspect]
  4. COREG [Concomitant]
  5. LASIX [Concomitant]
  6. DIGOXIN [Concomitant]
  7. SPIRONOLACTONE [Concomitant]

REACTIONS (6)
  - DRUG INTERACTION [None]
  - HAEMOGLOBIN DECREASED [None]
  - HAEMORRHAGE [None]
  - INTERNATIONAL NORMALISED RATIO INCREASED [None]
  - OEDEMA PERIPHERAL [None]
  - PAIN IN EXTREMITY [None]
